FAERS Safety Report 10929049 (Version 1)
Quarter: 2015Q1

REPORT INFORMATION
  Report Type: Spontaneous
  Country: US (occurrence: None)
  Receive Date: 20150129
  Receipt Date: 20150129
  Transmission Date: 20150721
  Serious: No
  Sender: FDA-Public Use
  Company Number: A-US2014-103021

PATIENT
  Age: 76 Year
  Sex: Female

DRUGS (2)
  1. ADCIRCA [Concomitant]
     Active Substance: TADALAFIL
  2. OPSUMIT [Suspect]
     Active Substance: MACITENTAN
     Indication: COR PULMONALE CHRONIC
     Route: 048
     Dates: start: 20140321

REACTIONS (13)
  - Sinus headache [None]
  - Musculoskeletal stiffness [None]
  - Frequent bowel movements [None]
  - Nasal congestion [None]
  - Vision blurred [None]
  - Joint stiffness [None]
  - Musculoskeletal discomfort [None]
  - Fatigue [None]
  - Headache [None]
  - Dysarthria [None]
  - Dizziness [None]
  - Asthenia [None]
  - Flushing [None]
